FAERS Safety Report 4975718-2 (Version None)
Quarter: 2006Q2

REPORT INFORMATION
  Report Type: 
  Country: None (occurrence: None)
  Receive Date: 20060411
  Receipt Date: 20060327
  Transmission Date: 20061013
  Serious: Yes (Hospitalization, Other)
  Sender: FDA-Public Use
  Company Number: A-JP2006-11872

PATIENT
  Age: 17 Year
  Sex: Female

DRUGS (4)
  1. TRACLEER [Suspect]
     Indication: PULMONARY HYPERTENSION
     Dosage: SEE IMAGE
     Route: 048
  2. LACTOMIN (LACTOBACILLUS SPOROGENES) [Concomitant]
  3. EPOPROSTENOL SODIUM [Concomitant]
  4. OXYGEN [Concomitant]

REACTIONS (4)
  - ALANINE AMINOTRANSFERASE INCREASED [None]
  - ASPARTATE AMINOTRANSFERASE INCREASED [None]
  - ENTERITIS INFECTIOUS [None]
  - LIVER FUNCTION TEST ABNORMAL [None]
